FAERS Safety Report 9114973 (Version 1)
Quarter: 2013Q1

REPORT INFORMATION
  Report Type: Spontaneous
  Country: CA (occurrence: US)
  Receive Date: 20130208
  Receipt Date: 20130208
  Transmission Date: 20140127
  Serious: Yes (Death, Hospitalization, Other)
  Sender: FDA-Public Use
  Company Number: CA-ASTRAZENECA-2013SE08049

PATIENT
  Age: 23 Year
  Sex: Male

DRUGS (3)
  1. SEROQUEL [Suspect]
     Route: 048
  2. ADDERALL [Suspect]
     Route: 065
  3. VYVANSE [Concomitant]

REACTIONS (15)
  - Completed suicide [Fatal]
  - Paranoia [Unknown]
  - Psychotic disorder [Unknown]
  - Self injurious behaviour [Unknown]
  - Aggression [Unknown]
  - Depression [Unknown]
  - Suicidal ideation [Unknown]
  - Intentional drug misuse [Unknown]
  - Drug dependence [Unknown]
  - Drug abuse [Unknown]
  - Delusion [Unknown]
  - Mood swings [Unknown]
  - Withdrawal syndrome [Unknown]
  - Anxiety [Unknown]
  - Off label use [Unknown]
